FAERS Safety Report 21610929 (Version 2)
Quarter: 2022Q4

REPORT INFORMATION
  Report Type: Report from Study
  Country: US (occurrence: None)
  Receive Date: 20221117
  Receipt Date: 20221123
  Transmission Date: 20230112
  Serious: Yes (Hospitalization)
  Sender: FDA-Public Use
  Company Number: US-Merck Healthcare KGaA-9365608

PATIENT
  Age: 50 Year
  Sex: Male
  Weight: 84 kg

DRUGS (2)
  1. AVELUMAB [Suspect]
     Active Substance: AVELUMAB
     Indication: Leiomyosarcoma
     Route: 042
     Dates: start: 20220825, end: 20221020
  2. VIMSELTINIB [Suspect]
     Active Substance: VIMSELTINIB
     Indication: Leiomyosarcoma
     Route: 048
     Dates: start: 20221109

REACTIONS (1)
  - Abdominal pain [Recovered/Resolved]

NARRATIVE: CASE EVENT DATE: 20221111
